FAERS Safety Report 15131566 (Version 2)
Quarter: 2018Q3

REPORT INFORMATION
  Report Type: Spontaneous
  Country: RU (occurrence: RU)
  Receive Date: 20180711
  Receipt Date: 20180717
  Transmission Date: 20181010
  Serious: Yes (Other)
  Sender: FDA-Public Use
  Company Number: RU-009507513-1807RUS004408

PATIENT
  Sex: Male

DRUGS (1)
  1. DESLORATADINE. [Suspect]
     Active Substance: DESLORATADINE
     Indication: ALLERGY TO ANIMAL

REACTIONS (2)
  - Drug ineffective [Unknown]
  - Angioedema [Unknown]

NARRATIVE: CASE EVENT DATE: 201807
